FAERS Safety Report 10598529 (Version 1)
Quarter: 2014Q4

REPORT INFORMATION
  Report Type: Spontaneous
  Country: US (occurrence: None)
  Receive Date: 20141119
  Receipt Date: 20141119
  Transmission Date: 20150529
  Serious: No
  Sender: FDA-Public Use
  Company Number: 1000069488

PATIENT
  Age: 71 Year
  Sex: Male

DRUGS (6)
  1. METFORMIN [Concomitant]
     Active Substance: METFORMIN HYDROCHLORIDE
  2. TUDORZA PRESSAIR [Suspect]
     Active Substance: ACLIDINIUM BROMIDE
     Indication: CHRONIC OBSTRUCTIVE PULMONARY DISEASE
     Dates: start: 201407
  3. THYROID MEDICATION (NOS) (THYROID MEDICATION) [Concomitant]
  4. TYLENOL [Concomitant]
     Active Substance: ACETAMINOPHEN
  5. RESCUE INHALER NOS (RESCUE INHALER NOS) [Concomitant]
  6. SYMBICORT (BUDESONIDE W/ FORMETEROL FUMARATE) [Concomitant]

REACTIONS (1)
  - Sneezing [None]

NARRATIVE: CASE EVENT DATE: 201407
